FAERS Safety Report 5500988-1 (Version None)
Quarter: 2007Q4

REPORT INFORMATION
  Report Type: 
  Country: None (occurrence: None)
  Receive Date: 20071029
  Receipt Date: 20071001
  Transmission Date: 20080405
  Serious: Yes (Other)
  Sender: FDA-Public Use
  Company Number: PHHO2007BR16337

PATIENT
  Age: 74 Year
  Sex: Female

DRUGS (12)
  1. FORASEQ [Suspect]
     Indication: BRONCHITIS
     Dosage: 12/400
     Dates: start: 20050101
  2. DIOVAN [Suspect]
     Indication: HYPERTENSION
     Dosage: 80 MG, QD
     Route: 048
     Dates: start: 20051001
  3. AEROLIN [Concomitant]
     Indication: BRONCHITIS
  4. ANCORON [Concomitant]
     Indication: HYPERTENSION
  5. GLUCOFORMIN [Concomitant]
     Indication: DIABETES MELLITUS
  6. AMARYL [Concomitant]
     Indication: DIABETES MELLITUS
  7. PRIMIDONE [Concomitant]
     Indication: TREMOR
  8. TALERC [Concomitant]
     Indication: ALLERGIC BRONCHITIS
  9. AZITHROMYCIN [Concomitant]
     Indication: RESPIRATORY TRACT INFECTION
  10. SOMALGIN [Concomitant]
  11. MODURETIC 5-50 [Concomitant]
     Indication: HYPERTENSION
  12. RIVOTRIL [Concomitant]

REACTIONS (5)
  - BRONCHITIS [None]
  - CARDIAC PACEMAKER INSERTION [None]
  - CHEST DISCOMFORT [None]
  - FATIGUE [None]
  - HEART RATE DECREASED [None]
